FAERS Safety Report 6523056-9 (Version None)
Quarter: 2009Q4

REPORT INFORMATION
  Report Type: 
  Country: None (occurrence: None)
  Receive Date: 20091222
  Receipt Date: 20091215
  Transmission Date: 20100525
  Serious: Yes (Hospitalization)
  Sender: FDA-Public Use
  Company Number: 2009S1000488

PATIENT
  Age: 34 Year
  Sex: Female

DRUGS (2)
  1. DARVOCET-N 100 [Suspect]
     Indication: PAIN
     Dosage: PRN;PO
     Route: 048
  2. AVONEX [Concomitant]

REACTIONS (3)
  - DEHYDRATION [None]
  - HYPOPHAGIA [None]
  - LOSS OF CONSCIOUSNESS [None]
